FAERS Safety Report 8603078-4 (Version None)
Quarter: 2012Q3

REPORT INFORMATION
  Report Type: 
  Country: None (occurrence: None)
  Receive Date: 20120817
  Receipt Date: 20120808
  Transmission Date: 20120928
  Serious: Yes (Other)
  Sender: FDA-Public Use
  Company Number: US-ABBOTT-12P-163-0966939-00

PATIENT
  Sex: Male

DRUGS (4)
  1. HUMIRA [Suspect]
     Dates: start: 20120712, end: 20120712
  2. HUMIRA [Suspect]
     Indication: CROHN'S DISEASE
     Route: 058
     Dates: start: 20120501, end: 20120501
  3. HUMIRA [Suspect]
     Dates: start: 20120726, end: 20120726
  4. HUMIRA [Suspect]
     Dates: start: 20120809

REACTIONS (7)
  - PYREXIA [None]
  - GASTROINTESTINAL INFLAMMATION [None]
  - INTESTINAL RESECTION [None]
  - POST PROCEDURAL DISCHARGE [None]
  - ABDOMINAL PAIN UPPER [None]
  - GASTROINTESTINAL TRACT IRRITATION [None]
  - ABSCESS [None]
